FAERS Safety Report 5037620-X (Version None)
Quarter: 2006Q2

REPORT INFORMATION
  Report Type: 
  Country: None (occurrence: None)
  Receive Date: 20060626
  Receipt Date: 20060626
  Transmission Date: 20061013
  Serious: Yes (Hospitalization, Disabling)
  Sender: FDA-Public Use
  Company Number: None

PATIENT
  Age: 43 Year
  Sex: Male
  Weight: 87.9978 kg

DRUGS (2)
  1. FLUPHENAZINE HCL [Suspect]
     Dosage: 10 MG
  2. BENZTROPINE MESYLATE [Suspect]
     Dosage: 1 MG

REACTIONS (2)
  - ILL-DEFINED DISORDER [None]
  - REFUSAL OF TREATMENT BY PATIENT [None]
